FAERS Safety Report 11311257 (Version 2)
Quarter: 2015Q4

REPORT INFORMATION
  Report Type: Spontaneous
  Country: US (occurrence: US)
  Receive Date: 20150727
  Receipt Date: 20151124
  Transmission Date: 20160304
  Serious: No
  Sender: FDA-Public Use
  Company Number: US-ASTRAZENECA-2015SE68535

PATIENT
  Age: 27145 Day
  Sex: Female
  Weight: 59.9 kg

DRUGS (5)
  1. OXYGEN. [Concomitant]
     Active Substance: OXYGEN
     Indication: BREAST CANCER
  2. NORVASC [Concomitant]
     Active Substance: AMLODIPINE BESYLATE
     Indication: HYPERTENSION
     Dosage: GENERIC, 40MG  DAILY
     Route: 048
  3. TUDORZA PRESSAIR [Suspect]
     Active Substance: ACLIDINIUM BROMIDE
     Indication: CHRONIC OBSTRUCTIVE PULMONARY DISEASE
     Dosage: 400 MCG 1 PUFF TWICE A DAY
     Route: 055
     Dates: start: 20150701
  4. OXYGEN. [Concomitant]
     Active Substance: OXYGEN
     Indication: BLOOD CHOLESTEROL ABNORMAL
  5. NORVASC [Concomitant]
     Active Substance: AMLODIPINE BESYLATE
     Indication: HYPERTENSION
     Dosage: GENERIC, 10MG  DAILY
     Route: 048

REACTIONS (6)
  - Intentional product misuse [Unknown]
  - Drug dose omission [Unknown]
  - Product quality issue [Unknown]
  - Dyspnoea [Unknown]
  - Overdose [Unknown]
  - Anxiety [Unknown]

NARRATIVE: CASE EVENT DATE: 20150711
